FAERS Safety Report 4902302-9 (Version None)
Quarter: 2006Q1

REPORT INFORMATION
  Report Type: 
  Country: None (occurrence: None)
  Receive Date: 20060207
  Receipt Date: 20060127
  Transmission Date: 20060701
  Serious: Yes (Other)
  Sender: FDA-Public Use
  Company Number: PHBS2006DE01749

PATIENT
  Age: 52 Year
  Sex: Female

DRUGS (2)
  1. PENICILLIN [Suspect]
     Indication: NASOPHARYNGITIS
  2. DICLOFENAC [Suspect]
     Indication: ARTHRALGIA

REACTIONS (1)
  - ACUTE GENERALISED EXANTHEMATOUS PUSTULOSIS [None]
